FAERS Safety Report 5719474-9 (Version None)
Quarter: 2008Q2

REPORT INFORMATION
  Report Type: 
  Country: None (occurrence: None)
  Receive Date: 20080428
  Receipt Date: 20080415
  Transmission Date: 20081010
  Serious: Yes (Other)
  Sender: FDA-Public Use
  Company Number: GB-AMGEN-US275130

PATIENT
  Sex: Female

DRUGS (2)
  1. ENBREL [Suspect]
     Indication: DRUG USE FOR UNKNOWN INDICATION
     Route: 065
     Dates: start: 20070101
  2. UNSPECIFIED STEROIDS [Concomitant]
     Route: 065

REACTIONS (3)
  - MASS [None]
  - OEDEMA MOUTH [None]
  - OEDEMA PERIPHERAL [None]
